FAERS Safety Report 6686900-0 (Version None)
Quarter: 2010Q2

REPORT INFORMATION
  Report Type: 
  Country: None (occurrence: None)
  Receive Date: 20100416
  Receipt Date: 20100416
  Transmission Date: 20101027
  Serious: Yes (Other)
  Sender: FDA-Public Use
  Company Number: None

PATIENT
  Age: 82 Year
  Sex: Male
  Weight: 61.2356 kg

DRUGS (1)
  1. AVODART [Suspect]
     Indication: PROSTATITIS
     Dosage: 0.5 MG CAP 1 PER DAY; GLAXO S K

REACTIONS (5)
  - DYSPHONIA [None]
  - DYSPNOEA [None]
  - LIP SWELLING [None]
  - PNEUMONIA [None]
  - RASH [None]
